FAERS Safety Report 19647559 (Version 2)
Quarter: 2021Q3

REPORT INFORMATION
  Report Type: Report from Study
  Country: RO (occurrence: RO)
  Receive Date: 20210802
  Receipt Date: 20210805
  Transmission Date: 20211014
  Serious: Yes (Death, Hospitalization, Other)
  Sender: FDA-Public Use
  Company Number: NVSC2021RO172452

PATIENT
  Age: 71 Year
  Sex: Male

DRUGS (2)
  1. ENTRESTO [Suspect]
     Active Substance: SACUBITRIL\VALSARTAN
     Indication: CARDIAC FAILURE
     Dosage: 100 MG, BID (49/51 MG, 1 TABLET IN THE MORNING 1 IN THE EVENING)
     Route: 048
     Dates: start: 20210428, end: 20210722
  2. DIUREX [Concomitant]
     Indication: PRODUCT USED FOR UNKNOWN INDICATION
     Dosage: UNK
     Route: 065

REACTIONS (5)
  - Hemiparesis [Fatal]
  - Feeling abnormal [Unknown]
  - Cerebral infarction [Fatal]
  - Thrombosis [Fatal]
  - Coma [Unknown]

NARRATIVE: CASE EVENT DATE: 20210722
